FAERS Safety Report 23656853 (Version 4)
Quarter: 2024Q2

REPORT INFORMATION
  Report Type: Spontaneous
  Country: CA (occurrence: CA)
  Receive Date: 20240321
  Receipt Date: 20240530
  Transmission Date: 20240716
  Serious: Yes (Other)
  Sender: FDA-Public Use
  Company Number: CA-CELLTRION INC.-2024CA006846

PATIENT

DRUGS (6)
  1. INFLECTRA [Suspect]
     Active Substance: INFLIXIMAB-DYYB
     Indication: Crohn^s disease
     Dosage: 5 MG/KG, W 0, 2, 6 AND Q 8 WEEKS
     Route: 042
     Dates: start: 20230830
  2. INFLECTRA [Suspect]
     Active Substance: INFLIXIMAB-DYYB
     Indication: Crohn^s disease
     Dosage: 5 MG/KG, W 0, 2, 6 AND Q 8 WEEKS
     Route: 042
     Dates: start: 20240130
  3. INFLECTRA [Suspect]
     Active Substance: INFLIXIMAB-DYYB
     Dosage: W0, 2, 6 AND Q8 WEEKS
     Route: 042
     Dates: start: 20230830, end: 20240325
  4. INFLECTRA [Suspect]
     Active Substance: INFLIXIMAB-DYYB
     Dosage: 5 MG/KG, 485 MG, AFTER 8 WEEKS AND 1 DAY
     Route: 042
     Dates: start: 20240522
  5. ENTOCORT [Concomitant]
     Active Substance: BUDESONIDE
     Dosage: 1 DF
  6. PENTASA [Concomitant]
     Active Substance: MESALAMINE
     Dosage: 1 DF

REACTIONS (4)
  - Colectomy [Recovering/Resolving]
  - Drug level below therapeutic [Unknown]
  - Off label use [Unknown]
  - Inappropriate schedule of product administration [Unknown]

NARRATIVE: CASE EVENT DATE: 20240325
